FAERS Safety Report 9164911 (Version 1)
Quarter: 2013Q1

REPORT INFORMATION
  Report Type: Spontaneous
  Country: GB (occurrence: GB)
  Receive Date: 20130315
  Receipt Date: 20130315
  Transmission Date: 20140127
  Serious: Yes (Other)
  Sender: FDA-Public Use
  Company Number: GB-GENZYME-CERZ-1002836

PATIENT
  Sex: Female
  Weight: 54.8 kg

DRUGS (3)
  1. CEREZYME [Suspect]
     Indication: GAUCHER^S DISEASE
     Dosage: 65.69 U/KG, Q2W
     Route: 042
     Dates: start: 20070425
  2. MICROGYNON [Concomitant]
     Indication: CONTRACEPTION
     Dosage: UNK
     Route: 065
  3. LEFLUNOMIDE [Concomitant]
     Indication: RHEUMATOID ARTHRITIS

REACTIONS (1)
  - Arthritis [Not Recovered/Not Resolved]
